FAERS Safety Report 19779864 (Version 1)
Quarter: 2021Q3

REPORT INFORMATION
  Report Type: Spontaneous
  Country: US (occurrence: US)
  Receive Date: 20210902
  Receipt Date: 20210902
  Transmission Date: 20211014
  Serious: No
  Sender: FDA-Public Use
  Company Number: US-MYLANLABS-2021M1056849

PATIENT
  Age: 45 Year
  Sex: Female
  Weight: 48 kg

DRUGS (7)
  1. LAMICTAL [Concomitant]
     Active Substance: LAMOTRIGINE
     Dosage: UNK
  2. EMSAM [Suspect]
     Active Substance: SELEGILINE
     Dosage: 9 MILLIGRAM
  3. EMSAM [Suspect]
     Active Substance: SELEGILINE
     Dosage: 6 MILLIGRAM
  4. LORAZEPAM. [Concomitant]
     Active Substance: LORAZEPAM
     Dosage: UNK
  5. EMSAM [Suspect]
     Active Substance: SELEGILINE
     Indication: DEPRESSION
     Dosage: 12 MILLIGRAM
     Route: 062
  6. LITHIUM. [Concomitant]
     Active Substance: LITHIUM
     Dosage: UNK
  7. SEROQUEL [Concomitant]
     Active Substance: QUETIAPINE FUMARATE
     Dosage: UNK

REACTIONS (3)
  - Application site irritation [Not Recovered/Not Resolved]
  - Application site discomfort [Not Recovered/Not Resolved]
  - Application site rash [Not Recovered/Not Resolved]
